FAERS Safety Report 11825233 (Version 1)
Quarter: 2015Q4

REPORT INFORMATION
  Report Type: Spontaneous
  Country: US (occurrence: None)
  Receive Date: 20151210
  Receipt Date: 20151210
  Transmission Date: 20160305
  Serious: Yes (Life-Threatening, Hospitalization, Disabling)
  Sender: FDA-Public Use
  Company Number: None

PATIENT
  Age: 51 Year
  Sex: Male
  Weight: 102.06 kg

DRUGS (5)
  1. GABAPENTIN. [Concomitant]
     Active Substance: GABAPENTIN
  2. LYRICA [Concomitant]
     Active Substance: PREGABALIN
  3. TRAMADOL. [Concomitant]
     Active Substance: TRAMADOL
  4. FINASTERIDE 5 MG [Suspect]
     Active Substance: FINASTERIDE
     Indication: BENIGN PROSTATIC HYPERPLASIA
     Dosage: 1 PILL
     Route: 048
     Dates: start: 20090209, end: 20110713
  5. CYCLOBENZAPRINE [Concomitant]
     Active Substance: CYCLOBENZAPRINE

REACTIONS (3)
  - Prostate cancer [None]
  - Erectile dysfunction [None]
  - Blood testosterone decreased [None]

NARRATIVE: CASE EVENT DATE: 20141208
